FAERS Safety Report 14972034 (Version 1)
Quarter: 2018Q2

REPORT INFORMATION
  Report Type: Spontaneous
  Country: US (occurrence: US)
  Receive Date: 20180605
  Receipt Date: 20180605
  Transmission Date: 20180711
  Serious: Yes (Hospitalization, Other)
  Sender: FDA-Public Use
  Company Number: US-APOTEX-2018AP015367

PATIENT
  Age: 73 Year
  Sex: Female

DRUGS (6)
  1. BACLOFEN. [Suspect]
     Active Substance: BACLOFEN
     Indication: STIFF PERSON SYNDROME
     Dosage: 20 MG, EVERY 8 HOUYS
     Route: 065
  2. DIAZEPAM. [Suspect]
     Active Substance: DIAZEPAM
     Dosage: 5 MG, EVERY 8 HOURS
     Route: 065
  3. ACETAMINOPHEN. [Suspect]
     Active Substance: ACETAMINOPHEN
     Indication: PAIN PROPHYLAXIS
     Dosage: 650 MG, PRN
     Route: 065
  4. OXYCODONE [Suspect]
     Active Substance: OXYCODONE
     Indication: STIFF PERSON SYNDROME
     Dosage: 5 MG, Q.6H, AS REQUIRED
     Route: 065
  5. OXYCODONE [Suspect]
     Active Substance: OXYCODONE
     Dosage: 5 MG, Q.6H
     Route: 065
  6. DIAZEPAM. [Suspect]
     Active Substance: DIAZEPAM
     Indication: STIFF PERSON SYNDROME
     Dosage: 3 MG, EVERY 8 HOURS PRN
     Route: 065

REACTIONS (5)
  - Condition aggravated [Unknown]
  - Somnolence [Recovering/Resolving]
  - Drug ineffective [Unknown]
  - Aphasia [Unknown]
  - Cerebrovascular accident [Unknown]
